FAERS Safety Report 14773703 (Version 2)
Quarter: 2019Q1

REPORT INFORMATION
  Report Type: Spontaneous
  Country: US (occurrence: US)
  Receive Date: 20180418
  Receipt Date: 20190128
  Transmission Date: 20190417
  Serious: Yes (Life-Threatening, Hospitalization, Other)
  Sender: FDA-Public Use
  Company Number: US-WEST-WARD PHARMACEUTICALS CORP.-US-H14001-18-02864

PATIENT
  Age: 76 Year
  Sex: Female

DRUGS (2)
  1. LIDOCAINE. [Suspect]
     Active Substance: LIDOCAINE
     Indication: LOCAL ANAESTHESIA
     Dosage: 3 DOSES OF 25 ML TO 30 ML
     Route: 061
  2. LIDOCAINE. [Suspect]
     Active Substance: LIDOCAINE
     Dosage: 2 DOSES OF 20 ML TO 30 ML
     Route: 061

REACTIONS (12)
  - Acute kidney injury [Recovered/Resolved]
  - Aggression [Recovering/Resolving]
  - Right ventricular dysfunction [Recovered/Resolved]
  - Dysarthria [Recovering/Resolving]
  - Overdose [Recovered/Resolved]
  - Respiratory failure [Recovering/Resolving]
  - Hypoxia [Recovering/Resolving]
  - Toxicity to various agents [Recovering/Resolving]
  - Unresponsive to stimuli [Recovering/Resolving]
  - Cardiac arrest [Recovering/Resolving]
  - Seizure [Recovering/Resolving]
  - Confusional state [Recovering/Resolving]
